FAERS Safety Report 6365983-1 (Version None)
Quarter: 2009Q3

REPORT INFORMATION
  Report Type: 
  Country: None (occurrence: None)
  Receive Date: 20090919
  Receipt Date: 20090825
  Transmission Date: 20100115
  Serious: No
  Sender: FDA-Public Use
  Company Number: US-ABBOTT-09P-163-0593904-00

PATIENT
  Sex: Male

DRUGS (7)
  1. HUMIRA [Suspect]
     Indication: CROHN'S DISEASE
     Route: 058
     Dates: start: 20090717, end: 20090717
  2. HUMIRA [Suspect]
     Route: 058
     Dates: start: 20090731, end: 20090731
  3. HUMIRA [Suspect]
     Dates: start: 20090814, end: 20090814
  4. COUMADIN [Concomitant]
     Indication: ATRIAL FIBRILLATION
     Dates: start: 20090101
  5. DIGOXIN [Concomitant]
     Indication: ATRIAL FIBRILLATION
     Dates: start: 20090101
  6. UNKNOWN DIABETIC MEDICATION [Concomitant]
     Indication: DIABETES MELLITUS
     Route: 048
  7. PREDNISONE [Concomitant]
     Indication: CROHN'S DISEASE
     Dosage: UNKNOWN TAPERING DOSE
     Dates: start: 20090101

REACTIONS (1)
  - ANGIOEDEMA [None]
